FAERS Safety Report 7218826-8 (Version None)
Quarter: 2011Q1

REPORT INFORMATION
  Report Type: 
  Country: None (occurrence: None)
  Receive Date: 20110110
  Receipt Date: 20100712
  Transmission Date: 20110831
  Serious: No
  Sender: FDA-Public Use
  Company Number: US-ABBOTT-10P-163-0658010-00

PATIENT
  Weight: 49.94 kg

DRUGS (10)
  1. VITAMIN D [Concomitant]
     Indication: VITAMIN SUPPLEMENTATION
  2. CALCIUM [Concomitant]
     Indication: MINERAL SUPPLEMENTATION
  3. DIGOXIN [Concomitant]
     Indication: CARDIAC FAILURE CONGESTIVE
  4. ALLOPURINOL [Concomitant]
     Indication: GOUT
  5. COUMADIN [Concomitant]
     Indication: ANTICOAGULANT THERAPY
  6. VICODIN [Suspect]
     Indication: ARTHRITIS
  7. METOPROLOL [Concomitant]
     Indication: CARDIAC FAILURE CONGESTIVE
  8. LASIX [Concomitant]
     Indication: CARDIAC FAILURE CONGESTIVE
  9. COUMADIN [Concomitant]
     Indication: HEART VALVE REPLACEMENT
  10. SYNTHROID [Concomitant]
     Indication: PRODUCT USED FOR UNKNOWN INDICATION

REACTIONS (1)
  - DRUG INEFFECTIVE [None]
